FAERS Safety Report 20227642 (Version 1)
Quarter: 2021Q4

REPORT INFORMATION
  Report Type: Spontaneous
  Country: JP (occurrence: JP)
  Receive Date: 20211224
  Receipt Date: 20211224
  Transmission Date: 20220303
  Serious: Yes (Other)
  Sender: FDA-Public Use
  Company Number: JP-GSKNCCC-Case-01374921_AE-52831

PATIENT
  Sex: Male

DRUGS (2)
  1. PAXIL CR [Suspect]
     Active Substance: PAROXETINE HYDROCHLORIDE
     Indication: Depression
     Dosage: 25 MG, QD
     Route: 065
     Dates: end: 20211011
  2. DEXTROMETHORPHAN HYDROBROMIDE [Concomitant]
     Active Substance: DEXTROMETHORPHAN HYDROBROMIDE
     Indication: Cough
     Dosage: 5 MG, TID
     Route: 065

REACTIONS (8)
  - Retinal haemorrhage [Recovering/Resolving]
  - Personality change [Recovering/Resolving]
  - Hyperkinesia [Recovering/Resolving]
  - Bedridden [Recovering/Resolving]
  - Aggression [Recovering/Resolving]
  - Blood pressure fluctuation [Recovering/Resolving]
  - Mania [Recovering/Resolving]
  - Nervousness [Recovering/Resolving]
